FAERS Safety Report 7730128-X (Version None)
Quarter: 2011Q3

REPORT INFORMATION
  Report Type: 
  Country: None (occurrence: None)
  Receive Date: 20110906
  Receipt Date: 20110830
  Transmission Date: 20111222
  Serious: Yes (Other)
  Sender: FDA-Public Use
  Company Number: PHHY2011JP74162

PATIENT
  Age: 74 Year
  Sex: Female

DRUGS (3)
  1. PACLITAXEL + CARBOPLATIN [Concomitant]
  2. ZOMETA [Suspect]
     Indication: METASTASES TO BONE
     Route: 041
  3. TS 1 [Concomitant]
     Indication: LUNG NEOPLASM MALIGNANT
     Route: 048

REACTIONS (2)
  - ANAPHYLACTIC REACTION [None]
  - CARCINOEMBRYONIC ANTIGEN INCREASED [None]
